FAERS Safety Report 17487196 (Version 4)
Quarter: 2020Q4

REPORT INFORMATION
  Report Type: Report from Study
  Country: US (occurrence: US)
  Receive Date: 20200303
  Receipt Date: 20201118
  Transmission Date: 20210113
  Serious: Yes (Other)
  Sender: FDA-Public Use
  Company Number: US-TAKEDA-2020TUS012157

PATIENT
  Age: 71 Year
  Sex: Female

DRUGS (1)
  1. VEDOLIZUMAB [Suspect]
     Active Substance: VEDOLIZUMAB
     Indication: CROHN^S DISEASE
     Dosage: 300 MILLIGRAM, Q4WEEKS
     Route: 042

REACTIONS (15)
  - Limb operation [Unknown]
  - Pruritus genital [Not Recovered/Not Resolved]
  - Abdominal discomfort [Unknown]
  - Vulvovaginal pruritus [Unknown]
  - Chronic sinusitis [Recovered/Resolved]
  - Abdominal distension [Unknown]
  - Stomatitis [Unknown]
  - Fall [Unknown]
  - Intestinal stenosis [Unknown]
  - Skin abrasion [Unknown]
  - Malaise [Unknown]
  - Nausea [Unknown]
  - Off label use [Unknown]
  - Product dose omission issue [Unknown]
  - Epistaxis [Unknown]

NARRATIVE: CASE EVENT DATE: 201707
